FAERS Safety Report 7526346-6 (Version None)
Quarter: 2011Q2

REPORT INFORMATION
  Report Type: 
  Country: None (occurrence: None)
  Receive Date: 20110606
  Receipt Date: 20110531
  Transmission Date: 20111010
  Serious: Yes (Other)
  Sender: FDA-Public Use
  Company Number: US-PFIZER INC-2011086772

PATIENT
  Sex: Female

DRUGS (6)
  1. PROVERA [Suspect]
     Dosage: UNK
  2. CALCIUM CARBONATE [Suspect]
     Dosage: UNK
  3. PREMARIN [Suspect]
     Dosage: UNK
  4. NICOTINIC ACID AMIDE [Suspect]
     Dosage: UNK
  5. CALTRATE 600 + VITAMIN D [Suspect]
     Dosage: UNK
     Route: 048
  6. ASCORBIC ACID [Suspect]
     Dosage: UNK

REACTIONS (2)
  - OSTEOPOROSIS [None]
  - DIARRHOEA [None]
